FAERS Safety Report 6711542-8 (Version None)
Quarter: 2010Q2

REPORT INFORMATION
  Report Type: 
  Country: None (occurrence: None)
  Receive Date: 20100505
  Receipt Date: 20100422
  Transmission Date: 20101027
  Serious: Yes (Other)
  Sender: FDA-Public Use
  Company Number: PHHY2010BR25813

PATIENT
  Age: 80 Year
  Sex: Female

DRUGS (1)
  1. DIOVAN HCT [Suspect]
     Indication: HYPERTENSION
     Dosage: 1 TABLET (160/12.5 MG) IN THE MORNING
     Route: 048

REACTIONS (7)
  - AGGRESSION [None]
  - CEREBROVASCULAR ACCIDENT [None]
  - CONFUSIONAL STATE [None]
  - DEMENTIA ALZHEIMER'S TYPE [None]
  - MEMORY IMPAIRMENT [None]
  - SOMNOLENCE [None]
  - STUBBORNNESS [None]
